FAERS Safety Report 6381244-9 (Version None)
Quarter: 2009Q3

REPORT INFORMATION
  Report Type: 
  Country: None (occurrence: None)
  Receive Date: 20090923
  Receipt Date: 20090908
  Transmission Date: 20100115
  Serious: Yes (Hospitalization)
  Sender: FDA-Public Use
  Company Number: ALA_00359_2009

PATIENT
  Sex: Female

DRUGS (7)
  1. ROWASA (ROWASA) 500 MG (NOT SPECIFIED) [Suspect]
     Indication: DIARRHOEA
     Dosage: (1000 MG ORAL)
     Dates: start: 20090703, end: 20090724
  2. ROWASA (ROWASA) 500 MG (NOT SPECIFIED) [Suspect]
     Indication: FAECAL INCONTINENCE
     Dosage: (1000 MG ORAL)
     Dates: start: 20090703, end: 20090724
  3. LEVOTHYROXINE SODIUM [Concomitant]
  4. TRIVASTAL /00397201/ [Concomitant]
  5. ALDACTAZINE [Concomitant]
  6. LERCANIDIPINE [Concomitant]
  7. FOSAVANCE [Concomitant]

REACTIONS (19)
  - ABDOMINAL PAIN [None]
  - ARTHRALGIA [None]
  - ASTHENIA [None]
  - C-REACTIVE PROTEIN INCREASED [None]
  - CARDIAC MURMUR [None]
  - DERMO-HYPODERMITIS [None]
  - DISORIENTATION [None]
  - ERYTHEMA [None]
  - ERYTHEMA NODOSUM [None]
  - FALL [None]
  - GRANULOMA [None]
  - INFLUENZA [None]
  - MUSCLE CONTRACTURE [None]
  - MYALGIA [None]
  - ORTHOSTATIC HYPOTENSION [None]
  - PYREXIA [None]
  - RALES [None]
  - SCIATICA [None]
  - WHITE BLOOD CELL COUNT INCREASED [None]
